FAERS Safety Report 13854582 (Version 1)
Quarter: 2017Q3

REPORT INFORMATION
  Report Type: Spontaneous
  Country: US (occurrence: US)
  Receive Date: 20170810
  Receipt Date: 20170810
  Transmission Date: 20171127
  Serious: No
  Sender: FDA-Public Use
  Company Number: US-BAYER-2017-152847

PATIENT
  Age: 62 Year
  Sex: Female
  Weight: 108.84 kg

DRUGS (1)
  1. MIRALAX [Suspect]
     Active Substance: POLYETHYLENE GLYCOL 3350
     Indication: CONSTIPATION
     Dosage: 1 - 3 TIMES WEEK
     Route: 048
     Dates: start: 2017, end: 20170806

REACTIONS (3)
  - Product use issue [None]
  - Off label use [None]
  - Frequent bowel movements [None]
